FAERS Safety Report 7410695-6 (Version None)
Quarter: 2011Q1

REPORT INFORMATION
  Report Type: 
  Country: None (occurrence: None)
  Receive Date: 20110302
  Receipt Date: 20110120
  Transmission Date: 20110831
  Serious: No
  Sender: FDA-Public Use
  Company Number: 025883

PATIENT
  Sex: Female
  Weight: 62.1 kg

DRUGS (4)
  1. PENTASA [Concomitant]
  2. ESOMEPRAZOLE [Concomitant]
  3. CIMZIA [Suspect]
     Indication: CROHN'S DISEASE
     Dosage: 400 MG 1X/2 WEEKS SUBCUTANEOUS
     Route: 058
     Dates: start: 20101118, end: 20101216
  4. MULTI-VITAMINS [Concomitant]

REACTIONS (3)
  - ANAL ABSCESS [None]
  - MIGRAINE [None]
  - BODY TEMPERATURE INCREASED [None]
